FAERS Safety Report 25930092 (Version 1)
Quarter: 2025Q4

REPORT INFORMATION
  Report Type: Report from Study
  Country: US (occurrence: US)
  Receive Date: 20251016
  Receipt Date: 20251016
  Transmission Date: 20260117
  Serious: Yes (Hospitalization)
  Sender: ESTEVE
  Company Number: US-ESTEVE-2025-04675

PATIENT
  Age: 4 Year
  Sex: Female

DRUGS (2)
  1. LYSODREN [Suspect]
     Active Substance: MITOTANE
     Indication: Adrenal gland cancer
  2. LYSODREN [Suspect]
     Active Substance: MITOTANE
     Dates: start: 20250823

REACTIONS (3)
  - Feeding intolerance [Unknown]
  - Product dose omission issue [Unknown]
  - Off label use [Unknown]

NARRATIVE: CASE EVENT DATE: 20250823
